FAERS Safety Report 6399441-5 (Version None)
Quarter: 2009Q4

REPORT INFORMATION
  Report Type: 
  Country: None (occurrence: None)
  Receive Date: 20091014
  Receipt Date: 20091001
  Transmission Date: 20100525
  Serious: Yes (Hospitalization)
  Sender: FDA-Public Use
  Company Number: PHHY2009BR41059

PATIENT
  Sex: Female

DRUGS (5)
  1. ZELMAC [Suspect]
     Indication: IRRITABLE BOWEL SYNDROME
     Dosage: 6 MG, 2 TABLET PER DAY
     Route: 048
  2. ZELMAC [Suspect]
     Indication: COLITIS
  3. MUVINLAX [Concomitant]
  4. TYLENOL (CAPLET) [Concomitant]
  5. OMEPRAZOLE [Concomitant]

REACTIONS (6)
  - ABDOMINAL DISTENSION [None]
  - DIARRHOEA [None]
  - ECONOMIC PROBLEM [None]
  - PAIN [None]
  - PROCTOCOLITIS [None]
  - SWELLING [None]
